FAERS Safety Report 9612227 (Version 2)
Quarter: 2013Q4

REPORT INFORMATION
  Report Type: Report from Study
  Country: US (occurrence: US)
  Receive Date: 20131010
  Receipt Date: 20131010
  Transmission Date: 20140711
  Serious: Yes (Other)
  Sender: FDA-Public Use
  Company Number: US-SANOFI-AVENTIS-2013SA060361

PATIENT
  Sex: Male

DRUGS (1)
  1. AUBAGIO [Suspect]
     Route: 065

REACTIONS (2)
  - Dermal cyst [Unknown]
  - Diarrhoea [Recovering/Resolving]
